FAERS Safety Report 8157520-6 (Version None)
Quarter: 2012Q1

REPORT INFORMATION
  Report Type: 
  Country: None (occurrence: None)
  Receive Date: 20120222
  Receipt Date: 20120216
  Transmission Date: 20120608
  Serious: Yes (Disabling)
  Sender: FDA-Public Use
  Company Number: US-GILEAD-2012-0050754

PATIENT
  Sex: Female

DRUGS (11)
  1. LETAIRIS [Suspect]
     Indication: PULMONARY HYPERTENSION
     Dosage: 5 MG, UNK
     Route: 048
     Dates: start: 20100801
  2. SPIRONOLACTONE [Concomitant]
     Indication: OEDEMA
     Dosage: UNK
  3. LETAIRIS [Suspect]
     Indication: LEFT VENTRICULAR DYSFUNCTION
  4. LASIX [Concomitant]
     Indication: HYPERTENSION
     Dosage: UNK
  5. DIGOXIN [Concomitant]
     Indication: ATRIAL FIBRILLATION
     Dosage: UNK
  6. NEXIUM [Concomitant]
     Indication: GASTROOESOPHAGEAL REFLUX DISEASE
     Dosage: UNK
  7. POTASSIUM CHLORIDE [Concomitant]
     Indication: HYPOKALAEMIA
     Dosage: UNK
  8. LIPITOR [Concomitant]
     Indication: HYPERLIPIDAEMIA
  9. COREG CR [Concomitant]
     Indication: HYPERTENSION
     Dosage: UNK
  10. LETAIRIS [Suspect]
     Indication: CHRONIC OBSTRUCTIVE PULMONARY DISEASE
  11. PERCOCET [Concomitant]
     Indication: ARTHRITIS

REACTIONS (1)
  - DEMENTIA [None]
